FAERS Safety Report 7901494-7 (Version None)
Quarter: 2011Q4

REPORT INFORMATION
  Report Type: 
  Country: None (occurrence: None)
  Receive Date: 20111108
  Receipt Date: 20111108
  Transmission Date: 20120403
  Serious: Yes (Life-Threatening, Hospitalization)
  Sender: FDA-Public Use
  Company Number: AU-ROCHE-1007582

PATIENT
  Sex: Female
  Weight: 70 kg

DRUGS (9)
  1. ACTEMRA [Suspect]
     Indication: RHEUMATOID ARTHRITIS
     Dates: start: 20110830
  2. CALCITRIOL [Concomitant]
  3. MIXTARD HUMAN 70/30 [Concomitant]
     Dosage: 30/7-80, 70,18
  4. PERIACTIN [Concomitant]
  5. TRAMADOL HCL [Concomitant]
  6. ARAVA [Concomitant]
  7. OXYCODONE HCL [Concomitant]
  8. ACTOS [Concomitant]
  9. PREDNISONE [Concomitant]

REACTIONS (4)
  - LOSS OF CONSCIOUSNESS [None]
  - SEPSIS [None]
  - SOMNOLENCE [None]
  - COMA [None]
